FAERS Safety Report 4675418-2 (Version None)
Quarter: 2005Q2

REPORT INFORMATION
  Report Type: 
  Country: None (occurrence: None)
  Receive Date: 20050527
  Receipt Date: 20050228
  Transmission Date: 20051028
  Serious: No
  Sender: FDA-Public Use
  Company Number: US-BRISTOL-MYERS SQUIBB COMPANY-12880183

PATIENT
  Age: 9 Year
  Sex: Male

DRUGS (7)
  1. ABILIFY [Suspect]
     Dates: start: 20050209, end: 20050228
  2. CONCERTA [Concomitant]
  3. CLONIDINE [Concomitant]
  4. SENOKOT [Concomitant]
  5. MIRALAX [Concomitant]
  6. SEROQUEL [Concomitant]
     Dates: end: 20050209
  7. KLONOPIN [Concomitant]

REACTIONS (10)
  - DELUSION [None]
  - DROOLING [None]
  - DYSARTHRIA [None]
  - DYSKINESIA [None]
  - FEELING ABNORMAL [None]
  - INCOHERENT [None]
  - MYDRIASIS [None]
  - PARANOIA [None]
  - PUPILLARY REFLEX IMPAIRED [None]
  - VISION BLURRED [None]
